FAERS Safety Report 8789345 (Version 1)
Quarter: 2012Q4

REPORT INFORMATION
  Report Type: Spontaneous
  Country: US (occurrence: None)
  Receive Date: 20120910
  Receipt Date: 20120910
  Transmission Date: 20130627
  Serious: Yes (Other)
  Sender: FDA-Public Use
  Company Number: None

PATIENT
  Sex: Female
  Weight: 68.95 kg

DRUGS (2)
  1. PANTOPRAZOLE [Suspect]
     Dosage: 40 mg 1 BID P.O.
     Dates: start: 20100707, end: 20101203
  2. PANTOPRAZOLE [Suspect]
     Dosage: 40 mg 1 BID P.O.
     Dates: start: 20100707, end: 20101203

REACTIONS (4)
  - Nausea [None]
  - Vomiting [None]
  - Abdominal pain [None]
  - Product substitution issue [None]
